FAERS Safety Report 7407516-4 (Version None)
Quarter: 2011Q2

REPORT INFORMATION
  Report Type: 
  Country: None (occurrence: None)
  Receive Date: 20110412
  Receipt Date: 20110331
  Transmission Date: 20111010
  Serious: Yes (Hospitalization)
  Sender: FDA-Public Use
  Company Number: US-BIOGENIDEC-2011BI012380

PATIENT
  Age: 60 Year
  Sex: Male

DRUGS (1)
  1. TYSABRI [Suspect]
     Indication: MULTIPLE SCLEROSIS
     Route: 042
     Dates: start: 20061018, end: 20110318

REACTIONS (8)
  - MUSCLE SPASMS [None]
  - PERSONALITY CHANGE [None]
  - PAIN [None]
  - PAIN IN EXTREMITY [None]
  - OSTEONECROSIS [None]
  - DYSKINESIA [None]
  - AGITATION [None]
  - BURNING SENSATION [None]
